FAERS Safety Report 4646912-5 (Version None)
Quarter: 2005Q2

REPORT INFORMATION
  Report Type: 
  Country: None (occurrence: None)
  Receive Date: 20050331
  Receipt Date: 20050215
  Transmission Date: 20051028
  Serious: No
  Sender: FDA-Public Use
  Company Number: 05P-163-0290720-00

PATIENT
  Age: 55 Year
  Sex: Female
  Weight: 96 kg

DRUGS (11)
  1. HUMIRA [Suspect]
     Indication: RHEUMATOID ARTHRITIS
     Dosage: 40 MG, 1 IN 1 WK, SUBCUTANEOUS
     Route: 058
     Dates: start: 20041115
  2. ATENOLOL [Concomitant]
  3. LISINOPRIL [Concomitant]
  4. HYDROCHLOROTHIAZIDE [Concomitant]
  5. PREDNISONE [Concomitant]
  6. AZATHIOPRINE [Concomitant]
  7. PAROXETINE HYDROCHLORIDE [Concomitant]
  8. ALPRAZOLAM [Concomitant]
  9. ACETAMINOPHEN W/ CODEINE [Concomitant]
  10. TRENTAL [Concomitant]
  11. LOVASTATIN [Concomitant]

REACTIONS (3)
  - COUGH [None]
  - NASOPHARYNGITIS [None]
  - THROAT IRRITATION [None]
